FAERS Safety Report 23678698 (Version 1)
Quarter: 2024Q1

REPORT INFORMATION
  Report Type: Spontaneous
  Country: FR (occurrence: FR)
  Receive Date: 20240327
  Receipt Date: 20240327
  Transmission Date: 20240410
  Serious: Yes (Death, Life-Threatening, Hospitalization, Other)
  Sender: FDA-Public Use
  Company Number: FR-BIOGARAN-B21000463

PATIENT
  Age: 51 Year
  Sex: Female

DRUGS (11)
  1. DIAZEPAM [Interacting]
     Active Substance: DIAZEPAM
     Indication: Substance use
     Route: 065
  2. DIAZEPAM [Interacting]
     Active Substance: DIAZEPAM
     Indication: Drug abuse
  3. COCAINE HYDROCHLORIDE [Interacting]
     Active Substance: COCAINE HYDROCHLORIDE
     Indication: Drug abuse
     Route: 065
  4. PREGABALIN [Interacting]
     Active Substance: PREGABALIN
     Indication: Substance use
     Route: 065
  5. PREGABALIN [Interacting]
     Active Substance: PREGABALIN
     Indication: Drug abuse
  6. CODEINE [Interacting]
     Active Substance: CODEINE
     Indication: Substance use
     Route: 065
  7. CODEINE [Interacting]
     Active Substance: CODEINE
     Indication: Drug abuse
  8. MORPHINE [Interacting]
     Active Substance: MORPHINE
     Indication: Substance use
     Route: 065
  9. MORPHINE [Interacting]
     Active Substance: MORPHINE
     Indication: Drug abuse
  10. METHADONE [Interacting]
     Active Substance: METHADONE HYDROCHLORIDE
     Indication: Substance use
     Route: 065
  11. METHADONE [Interacting]
     Active Substance: METHADONE HYDROCHLORIDE
     Indication: Drug abuse

REACTIONS (5)
  - Respiratory depression [Fatal]
  - Drug interaction [Fatal]
  - Asphyxia [Fatal]
  - Substance abuse [Fatal]
  - Intentional product misuse [Fatal]
